FAERS Safety Report 14819316 (Version 1)
Quarter: 2018Q2

REPORT INFORMATION
  Report Type: Spontaneous
  Country: JP (occurrence: JP)
  Receive Date: 20180427
  Receipt Date: 20180427
  Transmission Date: 20180711
  Serious: Yes (Other)
  Sender: FDA-Public Use
  Company Number: JP-BAYER-2018-077984

PATIENT
  Sex: Female

DRUGS (1)
  1. YAZ [Suspect]
     Active Substance: DROSPIRENONE\ETHINYL ESTRADIOL
     Dosage: UNK
     Route: 048
     Dates: start: 20180416

REACTIONS (5)
  - Altered state of consciousness [None]
  - Pain in extremity [Not Recovered/Not Resolved]
  - Vascular pain [Not Recovered/Not Resolved]
  - Speech disorder [None]
  - Hypoaesthesia [None]

NARRATIVE: CASE EVENT DATE: 201804
